FAERS Safety Report 8966966 (Version 1)
Quarter: 2012Q4

REPORT INFORMATION
  Report Type: 
  Country: CA (occurrence: CA)
  Receive Date: 20121217
  Receipt Date: 20121217
  Transmission Date: 20130627
  Serious: Yes (Other)
  Sender: FDA-Public Use
  Company Number: CA-ASTRAZENECA-2012SE90851

PATIENT
  Age: 49 Year
  Sex: Female

DRUGS (7)
  1. ROSUVASTATIN [Suspect]
     Indication: BLOOD CHOLESTEROL INCREASED
     Route: 048
     Dates: start: 201205, end: 201206
  2. ROSUVASTATIN [Suspect]
     Indication: BLOOD CHOLESTEROL INCREASED
     Route: 048
  3. ELAVIL [Concomitant]
     Route: 048
  4. DIAZEPAM [Concomitant]
     Route: 048
  5. CIPRALEX [Concomitant]
     Route: 048
  6. TEVA SULINDAC [Concomitant]
     Route: 048
  7. ATROPINE [Concomitant]
     Dosage: ONE DROP
     Route: 048

REACTIONS (4)
  - Malaise [Recovered/Resolved]
  - Dizziness [Recovered/Resolved]
  - Drug ineffective [Recovered/Resolved]
  - Blood cholesterol increased [Recovered/Resolved]
